FAERS Safety Report 9515591 (Version 1)
Quarter: 2013Q1

REPORT INFORMATION
  Report Type: Spontaneous
  Country: US (occurrence: None)
  Receive Date: 20130305
  Receipt Date: 20130305
  Transmission Date: 20140127
  Serious: Yes (Other)
  Sender: FDA-Public Use
  Company Number: 163-21880-12120758

PATIENT
  Age: 70 Year
  Sex: Male

DRUGS (9)
  1. REVLIMID [Suspect]
     Indication: PLASMA CELL MYELOMA
     Dosage: 5 MG, 14 IN 28 D, PO
     Route: 048
     Dates: start: 20121113
  2. ACYCLOVIR (ACICLOVIR) (UNKNOWN) [Concomitant]
  3. ALLOPURINOL (ALLOPURINOL) (UNKNOWN) [Concomitant]
  4. AMLODIPINE BESYLATE (AMLODIPINE BESILATE) (UNKNOWN) [Concomitant]
  5. ANDROGEL (TESTOSTERONE) (UNKNOWN) [Concomitant]
  6. APAP (PARACETAMOL) (UNKNOWN) [Concomitant]
  7. BACTRIM (BACTRIM) (UNKNOWN) [Concomitant]
  8. BYSTOLIC (NEBIVOLOL HYDROCHLORIDE) (UNKNOWN) [Concomitant]
  9. DEXAMETHASONE (DEXAMETHASONE) (UNKNOWN) [Concomitant]

REACTIONS (3)
  - Blood magnesium decreased [None]
  - Constipation [None]
  - Dizziness [None]
